FAERS Safety Report 5000723-X (Version None)
Quarter: 2006Q2

REPORT INFORMATION
  Report Type: 
  Country: None (occurrence: None)
  Receive Date: 20060512
  Receipt Date: 20060503
  Transmission Date: 20061013
  Serious: Yes (Other)
  Sender: FDA-Public Use
  Company Number: PHBS2006US06697

PATIENT
  Age: 27 Year
  Sex: Male

DRUGS (4)
  1. NIFEDIPINE [Concomitant]
     Dosage: 80 MG/D
     Route: 065
  2. METOPROLOL [Concomitant]
     Dosage: 200 MG/D
  3. CLONIDINE [Concomitant]
  4. CYCLOSPORINE [Suspect]
     Indication: RENAL TRANSPLANT
     Dosage: 250 MG/D
     Route: 065

REACTIONS (5)
  - CHORIORETINOPATHY [None]
  - OPTIC NERVE DISORDER [None]
  - RETINAL DEGENERATION [None]
  - RETINAL EXUDATES [None]
  - RETINAL PIGMENT EPITHELIOPATHY [None]
